FAERS Safety Report 9269329 (Version 3)
Quarter: 2013Q4

REPORT INFORMATION
  Report Type: Report from Study
  Country: CA (occurrence: CA)
  Receive Date: 20130503
  Receipt Date: 20131206
  Transmission Date: 20140711
  Serious: Yes (Life-Threatening, Hospitalization)
  Sender: FDA-Public Use
  Company Number: CA-ROCHE-1220496

PATIENT
  Age: 43 Year
  Sex: Male
  Weight: 93 kg

DRUGS (14)
  1. RITUXAN [Suspect]
     Indication: GRANULOMATOSIS WITH POLYANGIITIS
     Route: 042
     Dates: start: 201112, end: 201202
  2. RITUXAN [Suspect]
     Route: 042
     Dates: start: 20130112, end: 20130201
  3. RITUXAN [Suspect]
     Route: 042
  4. ATORVASTATIN [Suspect]
     Indication: PRODUCT USED FOR UNKNOWN INDICATION
     Route: 065
  5. AZATHIOPRIN [Concomitant]
  6. PREDNISONE [Concomitant]
  7. CLONAZEPAM [Concomitant]
  8. PULMICORT [Concomitant]
  9. ALENDRONATE [Concomitant]
  10. ASAPHEN [Concomitant]
  11. PANTOLOC [Concomitant]
  12. CIPRALEX [Concomitant]
  13. TERAZOSIN [Concomitant]
  14. PREGABALIN [Concomitant]

REACTIONS (5)
  - Cerebrovascular accident [Recovering/Resolving]
  - Vasculitis cerebral [Recovering/Resolving]
  - Granulomatosis with polyangiitis [Unknown]
  - Rash [Recovered/Resolved]
  - Protein total increased [Unknown]
